FAERS Safety Report 7324647-8 (Version None)
Quarter: 2011Q1

REPORT INFORMATION
  Report Type: 
  Country: None (occurrence: None)
  Receive Date: 20110301
  Receipt Date: 20110215
  Transmission Date: 20110831
  Serious: Yes (Other)
  Sender: FDA-Public Use
  Company Number: PHHY2011IT12860

PATIENT
  Sex: Female

DRUGS (3)
  1. GUTRON [Concomitant]
     Dosage: 2.5 MG/ML
     Route: 048
  2. CLOZAPINE [Suspect]
     Indication: PSYCHOTIC DISORDER
     Dosage: UNK
     Dates: start: 20080101, end: 20101230
  3. LORAZEPAM [Concomitant]
     Dosage: UNK

REACTIONS (1)
  - MUSCLE ENZYME INCREASED [None]
